FAERS Safety Report 4885341-6 (Version None)
Quarter: 2005Q4

REPORT INFORMATION
  Report Type: 
  Country: None (occurrence: None)
  Receive Date: 20051223
  Receipt Date: 20050930
  Transmission Date: 20060501
  Serious: Yes (Hospitalization)
  Sender: FDA-Public Use
  Company Number: USA020414226

PATIENT
  Age: 79 Year
  Sex: Female
  Weight: 71 kg

DRUGS (3)
  1. HUMALOG MIX 75/25 [Suspect]
     Indication: DIABETES MELLITUS
     Dosage: 30 U DAY
     Dates: start: 20020413
  2. HUMULIN N [Suspect]
     Dosage: 6 U/1 DAY
     Dates: start: 20040101
  3. WARFARIN [Concomitant]

REACTIONS (4)
  - COAGULATION TIME PROLONGED [None]
  - INJECTION SITE ERYTHEMA [None]
  - INJECTION SITE HAEMORRHAGE [None]
  - INJECTION SITE PAIN [None]
